FAERS Safety Report 13154787 (Version 2)
Quarter: 2017Q1

REPORT INFORMATION
  Report Type: Report from Study
  Country: BE (occurrence: BE)
  Receive Date: 20170126
  Receipt Date: 20170221
  Transmission Date: 20170428
  Serious: Yes (Other)
  Sender: FDA-Public Use
  Company Number: BE-BAYER-2017-007770

PATIENT
  Age: 75 Year
  Sex: Female

DRUGS (1)
  1. STIVARGA [Suspect]
     Active Substance: REGORAFENIB
     Indication: COLORECTAL CANCER
     Dosage: DAILY DOSE 120 MG
     Dates: start: 20161227, end: 20170207

REACTIONS (26)
  - Fatigue [None]
  - Dysphonia [None]
  - Dyspnoea [None]
  - Nausea [None]
  - Muscle spasms [None]
  - Headache [None]
  - Weight decreased [None]
  - Abdominal pain upper [Unknown]
  - Vomiting [None]
  - Weight decreased [None]
  - Pruritus [None]
  - Dry mouth [None]
  - Colorectal cancer metastatic [None]
  - Ascites [Not Recovered/Not Resolved]
  - Poor quality sleep [None]
  - Abdominal distension [Not Recovered/Not Resolved]
  - Weight increased [None]
  - Decreased appetite [Not Recovered/Not Resolved]
  - Palmar-plantar erythrodysaesthesia syndrome [None]
  - Diarrhoea [None]
  - Poor quality sleep [Recovering/Resolving]
  - Dyspnoea exertional [None]
  - Fatigue [Not Recovered/Not Resolved]
  - Abdominal pain upper [None]
  - Abdominal pain upper [Recovering/Resolving]
  - Palmar-plantar erythrodysaesthesia syndrome [None]

NARRATIVE: CASE EVENT DATE: 201701
